FAERS Safety Report 11240445 (Version 1)
Quarter: 2015Q3

REPORT INFORMATION
  Report Type: Spontaneous
  Country: US (occurrence: None)
  Receive Date: 20150701
  Receipt Date: 20150701
  Transmission Date: 20151125
  Serious: No
  Sender: FDA-Public Use
  Company Number: None

PATIENT
  Age: 42 Year
  Sex: Male
  Weight: 82.7 kg

DRUGS (1)
  1. BACITRACIN/NEOMYCIN/POLYMYXIN B [Suspect]
     Active Substance: BACITRACIN\NEOMYCIN\POLYMYXIN B SULFATE
     Indication: INFECTION
     Dosage: 1 UD
     Route: 061
     Dates: start: 20150215, end: 20150225

REACTIONS (3)
  - Application site pruritus [None]
  - Application site discharge [None]
  - Application site rash [None]

NARRATIVE: CASE EVENT DATE: 20150225
